FAERS Safety Report 8339811-9 (Version None)
Quarter: 2012Q2

REPORT INFORMATION
  Report Type: 
  Country: None (occurrence: None)
  Receive Date: 20120507
  Receipt Date: 20120427
  Transmission Date: 20120825
  Serious: Yes (Hospitalization)
  Sender: FDA-Public Use
  Company Number: CA-CELGENEUS-028-21880-12043125

PATIENT
  Sex: Female

DRUGS (5)
  1. NORTRIPTYLINE HCL [Concomitant]
     Route: 065
  2. METFORMIN HCL [Concomitant]
     Route: 065
  3. REVLIMID [Suspect]
     Indication: MULTIPLE MYELOMA
     Route: 048
     Dates: start: 20120314
  4. LYRICA [Concomitant]
     Route: 065
  5. PREDNISONE TAB [Concomitant]
     Route: 065

REACTIONS (2)
  - PERICARDITIS [None]
  - HEADACHE [None]
